FAERS Safety Report 15654210 (Version 3)
Quarter: 2019Q1

REPORT INFORMATION
  Report Type: Spontaneous
  Country: JP (occurrence: JP)
  Receive Date: 20181125
  Receipt Date: 20190211
  Transmission Date: 20190417
  Serious: Yes (Death, Hospitalization, Other)
  Sender: FDA-Public Use
  Company Number: JP-TEVA-2018-JP-978728

PATIENT
  Age: 74 Year
  Sex: Male

DRUGS (5)
  1. IBRITUMOMAB TIUXETAN [Concomitant]
     Active Substance: IBRITUMOMAB TIUXETAN
     Indication: B-CELL LYMPHOMA
     Dosage: UNK UNK, UNKNOWN FREQ.
     Route: 065
  2. BENDAMUSTINE HYDROCHLORIDE. [Suspect]
     Active Substance: BENDAMUSTINE HYDROCHLORIDE
     Indication: B-CELL LYMPHOMA
     Dosage: 90 MG/M2, CYCLIC, ONCE DAILY
     Route: 042
     Dates: start: 20121019, end: 20121020
  3. RITUXIMAB. [Concomitant]
     Active Substance: RITUXIMAB
     Dosage: UNK UNK, CYCLIC
     Route: 041
     Dates: start: 20130116
  4. RITUXIMAB. [Concomitant]
     Active Substance: RITUXIMAB
     Indication: B-CELL LYMPHOMA
     Dosage: UNK UNK, CYCLIC
     Route: 041
     Dates: start: 20121121
  5. BENDAMUSTINE HYDROCHLORIDE. [Suspect]
     Active Substance: BENDAMUSTINE HYDROCHLORIDE
     Dosage: UNK, CYCLIC
     Route: 042
     Dates: start: 20130116, end: 20130117

REACTIONS (4)
  - Febrile neutropenia [Unknown]
  - Death [Fatal]
  - Acute myeloid leukaemia [Unknown]
  - Prescribed underdose [Unknown]

NARRATIVE: CASE EVENT DATE: 20140912
